FAERS Safety Report 5671888-1 (Version None)
Quarter: 2008Q1

REPORT INFORMATION
  Report Type: 
  Country: None (occurrence: None)
  Receive Date: 20080314
  Receipt Date: 20080227
  Transmission Date: 20080703
  Serious: Yes (Hospitalization, Disabling)
  Sender: FDA-Public Use
  Company Number: ENC200800040

PATIENT
  Age: 60 Year
  Sex: Male

DRUGS (4)
  1. ARGATROBAN [Suspect]
     Indication: HEPARIN-INDUCED THROMBOCYTOPENIA
     Dosage: 6 MCG/KG/MIN, INTRAVENOUS; 0.5 MCG/KG/MIN, INTRAVENOUS
     Route: 042
     Dates: start: 20080123, end: 20080226
  2. ARGATROBAN [Suspect]
     Indication: HEPARIN-INDUCED THROMBOCYTOPENIA
     Dosage: 6 MCG/KG/MIN, INTRAVENOUS; 0.5 MCG/KG/MIN, INTRAVENOUS
     Route: 042
     Dates: start: 20080210
  3. AMPHOTERICIN B [Suspect]
  4. ANTIBIOTICS() [Suspect]

REACTIONS (6)
  - ACTIVATED PARTIAL THROMBOPLASTIN TIME PROLONGED [None]
  - BLOOD ALKALINE PHOSPHATASE ABNORMAL [None]
  - BLOOD BILIRUBIN ABNORMAL [None]
  - BLOOD LACTATE DEHYDROGENASE ABNORMAL [None]
  - GAMMA-GLUTAMYLTRANSFERASE ABNORMAL [None]
  - HEPATIC FUNCTION ABNORMAL [None]
